FAERS Safety Report 14900525 (Version 1)
Quarter: 2018Q2

REPORT INFORMATION
  Report Type: Spontaneous
  Country: US (occurrence: US)
  Receive Date: 20180429
  Receipt Date: 20180429
  Transmission Date: 20180711
  Serious: Yes (Hospitalization)
  Sender: FDA-Public Use
  Company Number: None

PATIENT
  Age: 79 Year
  Sex: Male
  Weight: 88 kg

DRUGS (1)
  1. APIXABAN [Suspect]
     Active Substance: APIXABAN
     Indication: DEEP VEIN THROMBOSIS
     Route: 048
     Dates: start: 20151015, end: 20180328

REACTIONS (2)
  - Deep vein thrombosis [None]
  - Treatment failure [None]

NARRATIVE: CASE EVENT DATE: 20180328
